FAERS Safety Report 9012675 (Version 1)
Quarter: 2013Q1

REPORT INFORMATION
  Report Type: Spontaneous
  Country: US (occurrence: US)
  Receive Date: 20130114
  Receipt Date: 20130114
  Transmission Date: 20140127
  Serious: Yes (Hospitalization, Other)
  Sender: FDA-Public Use
  Company Number: US-009507513-1301USA003323

PATIENT
  Age: 53 Year
  Sex: Female

DRUGS (6)
  1. MONTELUKAST SODIUM [Suspect]
     Indication: ASTHMA
     Dosage: 10 MG, QD
     Route: 048
  2. XOLAIR [Suspect]
     Indication: PRODUCT USED FOR UNKNOWN INDICATION
     Dosage: 300 MG, 1/MONTH
     Route: 058
  3. UNIPHYL [Concomitant]
     Dosage: 200 MG, UNK
  4. MUCOSOLVAN [Concomitant]
     Dosage: 45 MG, UNK
  5. PULMICORT [Concomitant]
  6. SEREVENT [Concomitant]

REACTIONS (1)
  - Allergic granulomatous angiitis [Unknown]
